FAERS Safety Report 6373975-1 (Version None)
Quarter: 2009Q3

REPORT INFORMATION
  Report Type: 
  Country: None (occurrence: None)
  Receive Date: 20090924
  Receipt Date: 20090915
  Transmission Date: 20100115
  Serious: Yes (Other)
  Sender: FDA-Public Use
  Company Number: US-AMGEN-KDL365255

PATIENT
  Sex: Female

DRUGS (14)
  1. PROCRIT [Suspect]
     Indication: DRUG USE FOR UNKNOWN INDICATION
     Dates: start: 20090901
  2. IRON [Concomitant]
     Route: 048
  3. SENOKOT [Concomitant]
  4. DULCOLAX [Concomitant]
  5. PREDNISONE [Concomitant]
  6. SINGULAIR [Concomitant]
  7. ZOCOR [Concomitant]
  8. ANAPROX [Concomitant]
  9. LASIX [Concomitant]
  10. NEXIUM [Concomitant]
  11. CALCIUM [Concomitant]
  12. FISH OIL [Concomitant]
  13. ADVAIR HFA [Concomitant]
  14. ASPIRIN [Concomitant]

REACTIONS (6)
  - ASTHENIA [None]
  - CONSTIPATION [None]
  - DIZZINESS [None]
  - HYPERTENSION [None]
  - PAINFUL DEFAECATION [None]
  - PALPITATIONS [None]
